FAERS Safety Report 18376700 (Version 1)
Quarter: 2020Q4

REPORT INFORMATION
  Report Type: Spontaneous
  Country: US (occurrence: US)
  Receive Date: 20201012
  Receipt Date: 20201012
  Transmission Date: 20210114
  Serious: Yes (Other)
  Sender: FDA-Public Use
  Company Number: None

PATIENT
  Age: 64 Year
  Sex: Female
  Weight: 93.6 kg

DRUGS (2)
  1. MULTI VITAMIN DAILY [Concomitant]
  2. NATURE-THROID [Suspect]
     Active Substance: THYROID, PORCINE
     Indication: HYPOTHYROIDISM
     Dosage: ?          QUANTITY:1 TABLET(S);?
     Route: 048

REACTIONS (7)
  - Aphonia [None]
  - Weight increased [None]
  - Recalled product administered [None]
  - Acne [None]
  - Fatigue [None]
  - Therapeutic product effect incomplete [None]
  - Alopecia [None]

NARRATIVE: CASE EVENT DATE: 20200727
